FAERS Safety Report 5026082-4 (Version None)
Quarter: 2006Q2

REPORT INFORMATION
  Report Type: 
  Country: None (occurrence: None)
  Receive Date: 20060614
  Receipt Date: 20060606
  Transmission Date: 20061013
  Serious: Yes (Other)
  Sender: FDA-Public Use
  Company Number: PHBS2006JP08548

PATIENT
  Age: 63 Year
  Sex: Male

DRUGS (1)
  1. LUDIOMIL [Suspect]
     Route: 048
     Dates: start: 20030901, end: 20050101

REACTIONS (1)
  - NEUROLEPTIC MALIGNANT SYNDROME [None]
